FAERS Safety Report 8937550 (Version 1)
Quarter: 2012Q4

REPORT INFORMATION
  Report Type: Spontaneous
  Country: US (occurrence: None)
  Receive Date: 20121128
  Receipt Date: 20121128
  Transmission Date: 20130627
  Serious: Yes (Other)
  Sender: FDA-Public Use
  Company Number: None

PATIENT
  Age: 50 Year
  Sex: Female
  Weight: 70.76 kg

DRUGS (2)
  1. VENLAFAXINE HCL [Suspect]
     Indication: HOT FLASHES
     Route: 048
     Dates: start: 20120501, end: 20121119
  2. VENLAFAXINE HCL [Suspect]
     Route: 048
     Dates: start: 20121119, end: 20121127

REACTIONS (13)
  - Dizziness [None]
  - Headache [None]
  - Pain [None]
  - Withdrawal syndrome [None]
  - Chest discomfort [None]
  - Dyspnoea [None]
  - Influenza like illness [None]
  - Blood cholesterol increased [None]
  - Weight increased [None]
  - Paraesthesia [None]
  - Arthralgia [None]
  - Arthralgia [None]
  - Drug dependence [None]
